FAERS Safety Report 20496400 (Version 6)
Quarter: 2022Q2

REPORT INFORMATION
  Report Type: Spontaneous
  Country: GB (occurrence: GB)
  Receive Date: 20220221
  Receipt Date: 20220628
  Transmission Date: 20220721
  Serious: Yes (Other)
  Sender: FDA-Public Use
  Company Number: GB-BIOGEN-2021BI01073905

PATIENT
  Age: 57 Year
  Sex: Female
  Weight: 94 kg

DRUGS (2)
  1. TYSABRI [Suspect]
     Active Substance: NATALIZUMAB
     Indication: Multiple sclerosis
     Route: 042
     Dates: start: 20130801, end: 20191031
  2. TYSABRI [Suspect]
     Active Substance: NATALIZUMAB
     Route: 042
     Dates: start: 20191101, end: 20210420

REACTIONS (1)
  - Progressive multifocal leukoencephalopathy [Unknown]

NARRATIVE: CASE EVENT DATE: 20210401
